FAERS Safety Report 4526397-X (Version None)
Quarter: 2004Q4

REPORT INFORMATION
  Report Type: 
  Country: None (occurrence: None)
  Receive Date: 20041213
  Receipt Date: 20041125
  Transmission Date: 20050328
  Serious: Yes (Other)
  Sender: FDA-Public Use
  Company Number: 2004-BP-12398NB

PATIENT
  Age: 52 Year
  Sex: Male

DRUGS (12)
  1. MICARDIS [Suspect]
     Indication: HYPERTENSION
     Dosage: 40 MG, PO
     Route: 048
     Dates: start: 20040820, end: 20041102
  2. WYTENS (GUANABENZ ACETATE )(TA) [Concomitant]
  3. MUCOSTA (REBAMIPIDE) (TA) [Concomitant]
  4. TINELAC (SENNOSIDE A+B) (TA) [Concomitant]
  5. EUGLUCON(GLIBENCLAMIDE) (TA) [Concomitant]
  6. ZYLORIC (ALLOPURINOL) (TA) [Concomitant]
  7. SLOW K (POTASSIUM CHLORIDE) (TA) [Concomitant]
  8. WARFARIN (WQRFARIN) (TA) [Concomitant]
  9. PREDONINE (PREDNISOLONE BESILATE) (TA) [Concomitant]
  10. NORVASC [Concomitant]
  11. NEORAL (CICLOSPORIN) (KA) [Concomitant]
  12. LENDORMIN (BROTIZOLAM) (TA) [Concomitant]

REACTIONS (1)
  - HYPOGLYCAEMIA [None]
